FAERS Safety Report 21447067 (Version 1)
Quarter: 2022Q4

REPORT INFORMATION
  Report Type: Spontaneous
  Country: US (occurrence: None)
  Receive Date: 20221011
  Receipt Date: 20221011
  Transmission Date: 20230113
  Serious: Yes (Death)
  Sender: FDA-Public Use
  Company Number: None

PATIENT
  Sex: Male

DRUGS (2)
  1. DEXAMETHASONE [Suspect]
     Active Substance: DEXAMETHASONE
     Indication: B-cell small lymphocytic lymphoma
     Dosage: OTHER FREQUENCY : 2X EVERY 28 DAYS;?OTHER ROUTE : IV;?
     Route: 042
     Dates: start: 202208
  2. DOXORUBICIN HYDROCHLORIDE [Suspect]
     Active Substance: DOXORUBICIN HYDROCHLORIDE
     Indication: B-cell small lymphocytic lymphoma
     Dosage: OTHER FREQUENCY : 2X EVERY 28 DAYS;?OTHER ROUTE : IV;?
     Route: 050
     Dates: start: 202208

REACTIONS (1)
  - Death [None]

NARRATIVE: CASE EVENT DATE: 20220913
